FAERS Safety Report 16175832 (Version 1)
Quarter: 2019Q2

REPORT INFORMATION
  Report Type: Spontaneous
  Country: US (occurrence: US)
  Receive Date: 20190409
  Receipt Date: 20190409
  Transmission Date: 20190711
  Serious: Yes (Hospitalization)
  Sender: FDA-Public Use
  Company Number: US-PFIZER INC-2019146711

PATIENT
  Age: 12 Year
  Sex: Female
  Weight: 45 kg

DRUGS (5)
  1. ADMELOG SOLOSTAR [Concomitant]
     Indication: BLOOD INSULIN ABNORMAL
     Dosage: UNK (SLIDING SCALE DOSE)
     Dates: start: 2013
  2. ZYRTEC [Concomitant]
     Active Substance: CETIRIZINE HYDROCHLORIDE
     Indication: SEASONAL ALLERGY
     Dosage: 10 MG, 1X/DAY
     Route: 048
  3. LANTUS [Concomitant]
     Active Substance: INSULIN GLARGINE
     Indication: DIABETES MELLITUS
     Dosage: 25 IU, 1X/DAY (25 UNITS EACH MORNING BY INJECTION)
  4. VYVANSE [Concomitant]
     Active Substance: LISDEXAMFETAMINE DIMESYLATE
     Indication: ATTENTION DEFICIT/HYPERACTIVITY DISORDER
     Dosage: 40 MG, 1X/DAY(ONE TABLET IN THE MORNING)
  5. GENOTROPIN [Suspect]
     Active Substance: SOMATROPIN
     Indication: GROWTH RETARDATION
     Dosage: 1.8 MG, DAILY (NIGHTLY AT BEDTIME)
     Route: 058
     Dates: start: 20190225

REACTIONS (3)
  - Product dose omission [Unknown]
  - Diabetic ketoacidosis [Recovered/Resolved]
  - Pharyngitis streptococcal [Unknown]

NARRATIVE: CASE EVENT DATE: 20190328
